FAERS Safety Report 5232144-9 (Version None)
Quarter: 2007Q1

REPORT INFORMATION
  Report Type: 
  Country: None (occurrence: None)
  Receive Date: 20061201
  Receipt Date: 20060726
  Transmission Date: 20070707
  Serious: No
  Sender: FDA-Public Use
  Company Number: US200607004348

PATIENT
  Age: 63 Year
  Sex: Female
  Weight: 94.3 kg

DRUGS (7)
  1. CYMBALTA [Suspect]
     Indication: NEUROPATHY
     Dosage: 30 MG,2/D,ORAL
     Route: 048
     Dates: start: 20051101, end: 20060725
  2. LASIX [Concomitant]
  3. VERELAN PM [Concomitant]
  4. ASPIRIN [Concomitant]
  5. COZAAR [Concomitant]
  6. AMBIEN [Concomitant]
  7. POTASSIUM (POTASSIUM) [Concomitant]

REACTIONS (4)
  - DEPRESSION [None]
  - FEELING ABNORMAL [None]
  - SUICIDAL IDEATION [None]
  - VISION BLURRED [None]
